FAERS Safety Report 8905012 (Version 3)
Quarter: 2012Q4

REPORT INFORMATION
  Report Type: 
  Country: US (occurrence: US)
  Receive Date: 20121109
  Receipt Date: 20121130
  Transmission Date: 20130627
  Serious: Yes (Hospitalization, Other)
  Sender: FDA-Public Use
  Company Number: US-ASTRAZENECA-2012SE83911

PATIENT
  Age: 79 Year
  Sex: Female
  Weight: 68 kg

DRUGS (14)
  1. NEXIUM [Suspect]
     Route: 048
  2. CRESTOR [Suspect]
     Route: 048
  3. TYLENOL [Concomitant]
     Dosage: TAKE 650 MG BY MOUTH EVERY 6 HRS AS NEEDED
     Route: 048
  4. NORVASC [Concomitant]
     Route: 048
  5. ASPIRIN [Concomitant]
     Route: 048
  6. VALIUM [Concomitant]
     Dosage: 5 MG, TWO TIMES A DAY AS NEEDED
     Route: 048
  7. ADVAIR [Concomitant]
     Dosage: 250/50 MCG/DOSE, 1 PUFF, EVERY 12 HRS
     Route: 055
  8. LASIX [Concomitant]
     Route: 048
  9. DUO-NEB [Concomitant]
     Dosage: 0.5 MG/3MG(2.5MG BASE)/3ML, TAKE 3 ML BY NEBULIZATION, EVERY 6 HRS AS ANEEDED
  10. COZAAR [Concomitant]
     Route: 048
  11. LOPRESSOR [Concomitant]
     Route: 048
  12. NASONEX [Concomitant]
     Dosage: 2 SPRAY DAILY
     Route: 045
  13. MULTIVITAMIN [Concomitant]
     Dosage: DAILY
     Route: 048
  14. MIRALAX [Concomitant]
     Dosage: 17 GM BY MOUTH DAILY
     Route: 048

REACTIONS (10)
  - Chronic obstructive pulmonary disease [Unknown]
  - Pneumonia bacterial [Unknown]
  - Bronchitis [Unknown]
  - Lung neoplasm malignant [Unknown]
  - Myocardial infarction [Unknown]
  - Dyspnoea [Unknown]
  - Pain [Unknown]
  - Malaise [Unknown]
  - Depression [Unknown]
  - Upper-airway cough syndrome [Unknown]
